FAERS Safety Report 4314892-8 (Version None)
Quarter: 2004Q1

REPORT INFORMATION
  Report Type: 
  Country: None (occurrence: None)
  Receive Date: 20040310
  Receipt Date: 20040310
  Transmission Date: 20041129
  Serious: Yes (Death)
  Sender: FDA-Public Use
  Company Number: None

PATIENT
  Age: 37 Year
  Sex: Male
  Weight: 141 kg

DRUGS (1)
  1. PROPOFOL [Suspect]
     Indication: CONVULSION
     Dosage: 240MCG PER/KG/MIN INTRAVENOUS
     Route: 042

REACTIONS (5)
  - CARDIAC ARREST [None]
  - METABOLIC ACIDOSIS [None]
  - RENAL FAILURE ACUTE [None]
  - RHABDOMYOLYSIS [None]
  - VENTRICULAR FIBRILLATION [None]
